APPROVED DRUG PRODUCT: FAMOTIDINE
Active Ingredient: FAMOTIDINE
Strength: 20MG
Dosage Form/Route: TABLET;ORAL
Application: A090837 | Product #001
Applicant: GLENMARK PHARMACEUTICALS INC USA
Approved: Aug 4, 2010 | RLD: No | RS: No | Type: OTC